FAERS Safety Report 10519610 (Version 3)
Quarter: 2014Q4

REPORT INFORMATION
  Report Type: Spontaneous
  Country: US (occurrence: US)
  Receive Date: 20141015
  Receipt Date: 20141114
  Transmission Date: 20150528
  Serious: Yes (Other)
  Sender: FDA-Public Use
  Company Number: US-PFIZER INC-2014276051

PATIENT
  Age: 58 Year
  Sex: Female

DRUGS (1)
  1. EFFEXOR XR [Suspect]
     Active Substance: VENLAFAXINE HYDROCHLORIDE
     Dosage: 300 MG PER DAY (TWO 150MG CAPSULES PER DAY)
     Dates: end: 20140930

REACTIONS (1)
  - Suicidal behaviour [Unknown]

NARRATIVE: CASE EVENT DATE: 201410
